FAERS Safety Report 7782602-8 (Version None)
Quarter: 2011Q3

REPORT INFORMATION
  Report Type: 
  Country: None (occurrence: None)
  Receive Date: 20110923
  Receipt Date: 20110919
  Transmission Date: 20111222
  Serious: Yes (Other)
  Sender: FDA-Public Use
  Company Number: A0945128A

PATIENT
  Age: 62 Year
  Sex: Female

DRUGS (1)
  1. ASPIRIN [Suspect]
     Indication: COAGULOPATHY
     Dosage: 81 MG/

REACTIONS (4)
  - URTICARIA [None]
  - BURNING SENSATION [None]
  - EAR PRURITUS [None]
  - HYPERSENSITIVITY [None]
